FAERS Safety Report 7179228-6 (Version None)
Quarter: 2010Q4

REPORT INFORMATION
  Report Type: 
  Country: None (occurrence: None)
  Receive Date: 20101208
  Receipt Date: 20100330
  Transmission Date: 20110411
  Serious: Yes (Death)
  Sender: FDA-Public Use
  Company Number: UTC-002557

PATIENT
  Age: 52 Year
  Sex: Female

DRUGS (1)
  1. REMODULIN [Suspect]
     Dosage: 201.6 UG/KG (0.14 UG/KG,1 IN 1 MINS, INTRAVENOUS
     Route: 042

REACTIONS (1)
  - DEATH [None]
